FAERS Safety Report 25239627 (Version 1)
Quarter: 2025Q2

REPORT INFORMATION
  Report Type: Spontaneous
  Country: US (occurrence: US)
  Receive Date: 20250425
  Receipt Date: 20250425
  Transmission Date: 20250717
  Serious: Yes (Hospitalization)
  Sender: MYLAN
  Company Number: US-MYLANLABS-2025M1035028

PATIENT
  Age: 43 Year
  Sex: Female

DRUGS (4)
  1. ARGATROBAN [Suspect]
     Active Substance: ARGATROBAN
     Indication: Heparin-induced thrombocytopenia
  2. ARGATROBAN [Suspect]
     Active Substance: ARGATROBAN
     Route: 048
  3. ARGATROBAN [Suspect]
     Active Substance: ARGATROBAN
     Route: 048
  4. ARGATROBAN [Suspect]
     Active Substance: ARGATROBAN

REACTIONS (1)
  - Oesophageal varices haemorrhage [Unknown]
